FAERS Safety Report 12195085 (Version 2)
Quarter: 2016Q2

REPORT INFORMATION
  Report Type: Spontaneous
  Country: JP (occurrence: JP)
  Receive Date: 20160321
  Receipt Date: 20160614
  Transmission Date: 20160815
  Serious: Yes (Hospitalization)
  Sender: FDA-Public Use
  Company Number: JP-JNJFOC-20160317967

PATIENT
  Age: 72 Year
  Sex: Male
  Weight: 83 kg

DRUGS (12)
  1. AZILVA [Concomitant]
     Active Substance: AZILSARTAN KAMEDOXOMIL
     Dosage: START DATE: BEFORE ADMINISTRATION OF CANAGLIFLOZIN.
     Route: 048
  2. FEBURIC [Concomitant]
     Active Substance: FEBUXOSTAT
     Dosage: START DATE: BEFORE ADMINISTRATION OF CANAGLIFLOZIN.
     Route: 048
  3. ZETIA [Concomitant]
     Active Substance: EZETIMIBE
     Dosage: START DATE: BEFORE ADMINISTRATION OF CANAGLIFLOZIN.
     Route: 048
  4. CANAGLU [Suspect]
     Active Substance: CANAGLIFLOZIN
     Indication: TYPE 2 DIABETES MELLITUS
     Route: 048
     Dates: start: 20141022
  5. LIVALO [Concomitant]
     Active Substance: PITAVASTATIN CALCIUM
     Dosage: START DATE: BEFORE ADMINISTRATION OF CANAGLIFLOZIN.
     Route: 048
  6. LOTRIGA [Concomitant]
     Active Substance: OMEGA-3-ACID ETHYL ESTERS
     Dosage: START DATE: BEFORE ADMINISTRATION OF CANAGLIFLOZIN.
     Route: 048
  7. AMLODIPINE [Concomitant]
     Active Substance: AMLODIPINE BESYLATE
     Dosage: START DATE: BEFORE ADMINISTRATION OF CANAGLIFLOZIN.
     Route: 048
  8. BISOPROLOL [Concomitant]
     Active Substance: BISOPROLOL
     Dosage: START DATE: BEFORE ADMINISTRATION OF CANAGLIFLOZIN.
     Route: 048
  9. BAYASPIRIN [Concomitant]
     Active Substance: ASPIRIN
     Dosage: START DATE: BEFORE ADMINISTRATION OF CANAGLIFLOZIN.
     Route: 048
  10. AMARYL [Concomitant]
     Active Substance: GLIMEPIRIDE
     Indication: TYPE 2 DIABETES MELLITUS
     Dosage: START DATE: THREE MONTHS OR MORE BEFORE ADMINISTRATION OF CANAGLIFLOZIN.
     Route: 048
  11. METGLUCO [Concomitant]
     Active Substance: METFORMIN HYDROCHLORIDE
     Indication: TYPE 2 DIABETES MELLITUS
     Dosage: START DATE: THREE MONTHS OR MORE BEFORE ADMINISTRATION OF CANAGLIFLOZIN.
     Route: 048
     Dates: end: 20150908
  12. EFIENT [Concomitant]
     Active Substance: PRASUGREL HYDROCHLORIDE
     Dosage: ONGOING BEFORE ADMINISTRATION OF CANAGLIFLOZIN.
     Route: 048
     Dates: start: 20150606

REACTIONS (1)
  - Cellulitis [Recovering/Resolving]

NARRATIVE: CASE EVENT DATE: 20150819
